FAERS Safety Report 26181357 (Version 1)
Quarter: 2025Q4

REPORT INFORMATION
  Report Type: Report from Study
  Country: US (occurrence: US)
  Receive Date: 20251221
  Receipt Date: 20251221
  Transmission Date: 20260118
  Serious: No
  Sender: MERCK SHARP & DOHME LLC
  Company Number: US-009507513-2360058

PATIENT
  Age: 74 Year
  Sex: Female

DRUGS (5)
  1. MOLNUPIRAVIR [Suspect]
     Active Substance: MOLNUPIRAVIR
     Dosage: DOSE: 4 CAPSULES, STRENGTH: 200 MG
     Route: 048
     Dates: start: 20251208
  2. VALTREX [Concomitant]
     Active Substance: VALACYCLOVIR HYDROCHLORIDE
  3. ELIQUIS [Concomitant]
     Active Substance: APIXABAN
  4. TRAMADOL [Concomitant]
     Active Substance: TRAMADOL
  5. KEFLEX [Concomitant]
     Active Substance: CEPHALEXIN

REACTIONS (3)
  - COVID-19 [Unknown]
  - Incorrect dose administered [Unknown]
  - Malaise [Unknown]

NARRATIVE: CASE EVENT DATE: 20251201
